FAERS Safety Report 12903152 (Version 1)
Quarter: 2016Q4

REPORT INFORMATION
  Report Type: Spontaneous
  Country: CH (occurrence: CH)
  Receive Date: 20161102
  Receipt Date: 20161102
  Transmission Date: 20170207
  Serious: Yes (Hospitalization)
  Sender: FDA-Public Use
  Company Number: CH-PFIZER INC-2016506243

PATIENT
  Age: 86 Year
  Sex: Female

DRUGS (8)
  1. PANTOZOL [Concomitant]
     Active Substance: PANTOPRAZOLE SODIUM
     Dosage: UNK
  2. TRIATEC [Suspect]
     Active Substance: RAMIPRIL
     Dosage: 5 MG, DAILY
     Route: 048
  3. LYRICA [Concomitant]
     Active Substance: PREGABALIN
     Dosage: UNK
  4. LANTUS [Suspect]
     Active Substance: INSULIN GLARGINE
     Dosage: 20 IU, DAILY
     Route: 058
     Dates: start: 201608
  5. STILNOX [Suspect]
     Active Substance: ZOLPIDEM TARTRATE
     Dosage: 10 MG, DAILY
     Route: 048
     Dates: end: 201609
  6. TORASEMIDE [Suspect]
     Active Substance: TORSEMIDE
     Dosage: 5 MG, DAILY
     Route: 048
     Dates: end: 201609
  7. SINTROM [Concomitant]
     Active Substance: ACENOCOUMAROL
     Dosage: UNK
  8. CONCOR [Suspect]
     Active Substance: BISOPROLOL FUMARATE
     Dosage: 5 MG, DAILY
     Route: 048

REACTIONS (5)
  - Head injury [Recovered/Resolved]
  - Hypotension [Recovered/Resolved]
  - Presyncope [Recovered/Resolved]
  - Fall [Recovered/Resolved]
  - Blood glucose fluctuation [Recovered/Resolved]

NARRATIVE: CASE EVENT DATE: 20160907
